FAERS Safety Report 7720555-9 (Version None)
Quarter: 2011Q3

REPORT INFORMATION
  Report Type: 
  Country: None (occurrence: None)
  Receive Date: 20110831
  Receipt Date: 20110831
  Transmission Date: 20111222
  Serious: Yes (Other)
  Sender: FDA-Public Use
  Company Number: None

PATIENT
  Age: 35 Year
  Sex: Female
  Weight: 43.544 kg

DRUGS (2)
  1. YAZ [Suspect]
     Indication: CONTRACEPTION
     Dates: start: 20080701, end: 20090701
  2. YAZ [Suspect]
     Indication: MENSTRUAL DISORDER
     Dates: start: 20080701, end: 20090701

REACTIONS (2)
  - DRUG INEFFECTIVE [None]
  - ANGIOEDEMA [None]
